FAERS Safety Report 6005835-X (Version None)
Quarter: 2008Q4

REPORT INFORMATION
  Report Type: 
  Country: None (occurrence: None)
  Receive Date: 20081217
  Receipt Date: 20081212
  Transmission Date: 20090506
  Serious: Yes (Death)
  Sender: FDA-Public Use
  Company Number: GB-BAYER-200411594GDS

PATIENT
  Age: 93 Year
  Sex: Female

DRUGS (4)
  1. CIPROFLOXACIN HCL [Suspect]
     Indication: URINARY TRACT INFECTION
     Route: 048
  2. ASPIRIN [Concomitant]
     Indication: UNEVALUABLE EVENT
     Route: 065
  3. RAMIPRIL [Concomitant]
     Indication: UNEVALUABLE EVENT
     Route: 065
  4. ISOSORBIDE DINITRATE [Concomitant]
     Indication: UNEVALUABLE EVENT
     Route: 065

REACTIONS (10)
  - BLISTER [None]
  - DELIRIUM [None]
  - MALAISE [None]
  - MUCOSAL EROSION [None]
  - MULTI-ORGAN FAILURE [None]
  - PYREXIA [None]
  - RASH ERYTHEMATOUS [None]
  - SKIN LESION [None]
  - TACHYCARDIA [None]
  - TOXIC EPIDERMAL NECROLYSIS [None]
